FAERS Safety Report 9226177 (Version 1)
Quarter: 2013Q2

REPORT INFORMATION
  Report Type: Report from Study
  Country: GW (occurrence: GW)
  Receive Date: 20130411
  Receipt Date: 20130411
  Transmission Date: 20140414
  Serious: Yes (Other)
  Sender: FDA-Public Use
  Company Number: GW-ABBOTT-13P-071-1071288-00

PATIENT
  Sex: Female
  Weight: 45 kg

DRUGS (4)
  1. KALETRA TABLETS [Suspect]
     Indication: HIV INFECTION
     Dosage: UNIT DOSE: 200/50 MG, DAILY DOSE: 800/200 MG
     Route: 048
     Dates: start: 20120702
  2. TENOFOVIR [Concomitant]
     Indication: HIV INFECTION
     Route: 048
     Dates: start: 20120702
  3. LAMIVUDINE [Concomitant]
     Indication: HIV INFECTION
     Route: 048
     Dates: start: 20120702
  4. COTRIMOXAZOLE [Concomitant]
     Indication: PROPHYLAXIS
     Route: 048
     Dates: start: 20120629

REACTIONS (1)
  - Abortion spontaneous [Unknown]
